FAERS Safety Report 8329351-5 (Version None)
Quarter: 2012Q2

REPORT INFORMATION
  Report Type: 
  Country: None (occurrence: None)
  Receive Date: 20120502
  Receipt Date: 20120210
  Transmission Date: 20120825
  Serious: Yes (Death)
  Sender: FDA-Public Use
  Company Number: US-ASTRAZENECA-2011SE16749

PATIENT
  Age: 87 Year
  Sex: Female
  Weight: 61.2 kg

DRUGS (22)
  1. REGLAN [Concomitant]
  2. FUROSEMIDE [Concomitant]
  3. LEXAPRO [Concomitant]
     Route: 048
  4. FASLODEX [Suspect]
     Indication: BREAST CANCER
     Dosage: 250 MG/5 ML SOLUTION- INJECT 500 MG MONTHLY
     Route: 058
     Dates: start: 20071129, end: 20110215
  5. PLAVIX [Concomitant]
  6. ROPINIROLE [Concomitant]
  7. NITROSTAT [Concomitant]
     Route: 060
  8. FUROSEMIDE [Concomitant]
  9. LISINOPRIL [Concomitant]
     Route: 048
  10. PREDNISONE [Concomitant]
  11. KADIAN [Concomitant]
  12. CARDIZEM CD [Concomitant]
  13. LISINOPRIL [Concomitant]
     Dosage: HALF TABLET IN THE EVENING
     Route: 048
  14. ALPRAZOLAM [Concomitant]
     Indication: ANXIETY
     Dosage: MAY TAKE UPTO 2 TABLETS EVERY 12 HOURS AS NEEDED
  15. PREVACID [Concomitant]
  16. MORPHINE SULFATE [Concomitant]
     Indication: PAIN
     Dosage: STRENGTH -20 MG/5 ML, DOSAGE- 0.25 TO 1 ML EVERY FOUR HOURS AS NEEDED
  17. NICOTINE [Concomitant]
     Dosage: 21 MG/24 H
  18. LEXAPRO [Concomitant]
     Route: 048
  19. LANSOPRAZOLE [Concomitant]
  20. ACETAMINOPHEN [Concomitant]
     Dosage: 1 TO 2 TABLETS EVERY FOUR HOURS AS NEEDED
  21. METOPROLOL TARTRATE [Concomitant]
     Dosage: TAKE HALF TABLET BID
     Route: 048
  22. DILTIAZEM [Concomitant]

REACTIONS (2)
  - BREAST CANCER [None]
  - OFF LABEL USE [None]
